FAERS Safety Report 6117382-5 (Version None)
Quarter: 2009Q1

REPORT INFORMATION
  Report Type: 
  Country: None (occurrence: None)
  Receive Date: 20090314
  Receipt Date: 20090114
  Transmission Date: 20090719
  Serious: No
  Sender: FDA-Public Use
  Company Number: US-ABBOTT-09P-163-0498143-00

PATIENT
  Sex: Female
  Weight: 52.21 kg

DRUGS (7)
  1. HUMIRA [Suspect]
     Indication: RHEUMATOID ARTHRITIS
     Route: 058
     Dates: start: 20070101, end: 20081201
  2. HUMIRA [Suspect]
     Dates: start: 20090107
  3. ANTIBIOTIC [Suspect]
     Indication: DRUG USE FOR UNKNOWN INDICATION
     Dates: start: 20081201, end: 20090101
  4. VICODIN [Concomitant]
     Indication: ARTHRALGIA
     Dosage: AS NEDED FOR ARTHRITIS PAIN
  5. UNKNOWN MEDICATION FOR BLOOD PRESSURE [Concomitant]
     Indication: HYPERTENSION
     Dates: start: 20090101
  6. UNKNOWN HEART MEDICATIONS [Concomitant]
     Indication: CARDIAC DISORDER
  7. UNKNOWN MEDICATIONS FOR EMPHYSEMA [Concomitant]
     Indication: EMPHYSEMA

REACTIONS (3)
  - ARTHRALGIA [None]
  - HYPERTENSION [None]
  - NASOPHARYNGITIS [None]
